FAERS Safety Report 10072592 (Version 1)
Quarter: 2014Q2

REPORT INFORMATION
  Report Type: Spontaneous
  Country: CA (occurrence: CA)
  Receive Date: 20140411
  Receipt Date: 20140411
  Transmission Date: 20141212
  Serious: Yes (Hospitalization)
  Sender: FDA-Public Use
  Company Number: CA-JNJFOC-20140404643

PATIENT
  Age: 17 Year
  Sex: Male
  Weight: 40.8 kg

DRUGS (5)
  1. REMICADE [Suspect]
     Indication: CROHN^S DISEASE
     Route: 042
     Dates: start: 20130607
  2. PREVACID [Concomitant]
     Route: 048
  3. VITAMIN D [Concomitant]
     Route: 048
  4. TUMS [Concomitant]
     Route: 048
  5. MELATONIN [Concomitant]
     Dosage: DURING SLEEP
     Route: 048

REACTIONS (2)
  - Sepsis [Recovered/Resolved]
  - Subcutaneous abscess [Recovered/Resolved]
